FAERS Safety Report 25440906 (Version 1)
Quarter: 2025Q2

REPORT INFORMATION
  Report Type: Spontaneous
  Country: US (occurrence: US)
  Receive Date: 20250616
  Receipt Date: 20250616
  Transmission Date: 20250716
  Serious: No
  Sender: BAYER HEALTHCARE LLC
  Company Number: US-BAYER-2025A079088

PATIENT
  Age: 90 Year
  Sex: Male

DRUGS (3)
  1. CLARITIN REDITABS [Suspect]
     Active Substance: LORATADINE
     Dosage: 1 DF, QD
     Route: 048
     Dates: end: 20250610
  2. CLOPIDOGREL [Concomitant]
     Active Substance: CLOPIDOGREL BISULFATE
  3. METOPROLOL [Concomitant]
     Active Substance: METOPROLOL

REACTIONS (1)
  - Therapeutic response shortened [Not Recovered/Not Resolved]
